FAERS Safety Report 7142619-3 (Version None)
Quarter: 2010Q4

REPORT INFORMATION
  Report Type: 
  Country: None (occurrence: None)
  Receive Date: 20101112
  Receipt Date: 20101005
  Transmission Date: 20110411
  Serious: No
  Sender: FDA-Public Use
  Company Number: 1000016785

PATIENT
  Age: 35 Year
  Sex: Female

DRUGS (1)
  1. SAVELLA [Suspect]
     Dosage: ORAL
     Route: 048

REACTIONS (1)
  - VOMITING [None]
